FAERS Safety Report 4381288-2 (Version None)
Quarter: 2004Q2

REPORT INFORMATION
  Report Type: 
  Country: None (occurrence: None)
  Receive Date: 20040617
  Receipt Date: 20040617
  Transmission Date: 20050107
  Serious: Yes (Other)
  Sender: FDA-Public Use
  Company Number: None

PATIENT
  Sex: Male
  Weight: 95.709 kg

DRUGS (2)
  1. OXALIPLATIN 189 MG INFUSION [Suspect]
     Indication: RECTAL CANCER
     Dosage: 189 MG IVBP OVER 2 H { GIVEN EVERY 2 WEEKS}
     Route: 042
     Dates: start: 20040527
  2. LEUCOVORIN 888 MG } INFUSION [Suspect]
     Indication: RECTAL CANCER
     Dosage: 888 MG IVPB OVER 2 H  CYCLE 7
     Route: 040
     Dates: start: 20040527

REACTIONS (1)
  - URTICARIA [None]
